FAERS Safety Report 8611301-5 (Version None)
Quarter: 2012Q3

REPORT INFORMATION
  Report Type: 
  Country: None (occurrence: None)
  Receive Date: 20120822
  Receipt Date: 20120813
  Transmission Date: 20120928
  Serious: Yes (Hospitalization)
  Sender: FDA-Public Use
  Company Number: US-ASTRAZENECA-2012SE37274

PATIENT
  Age: 68 Year
  Sex: Female
  Weight: 72.6 kg

DRUGS (15)
  1. PRILOSEC OTC [Suspect]
     Indication: DYSPEPSIA
     Dosage: TOOK 1 TABLET AT 4 PM AND TOOK ONE MORE TABLET AT 8 PM
     Route: 048
     Dates: start: 20120601, end: 20120601
  2. GLYBURIDE [Concomitant]
     Route: 048
  3. IMDUR [Concomitant]
  4. ZESTRIL [Concomitant]
     Indication: HYPERTENSION
     Route: 048
  5. DIABETIC MEDICATION [Concomitant]
  6. CALCIUM CARBONATE [Concomitant]
     Indication: GASTROOESOPHAGEAL REFLUX DISEASE
  7. PRILOSEC OTC [Suspect]
     Indication: GASTROOESOPHAGEAL REFLUX DISEASE
     Dosage: TOOK 1 TABLET AT 4 PM AND TOOK ONE MORE TABLET AT 8 PM
     Route: 048
     Dates: start: 20120601, end: 20120601
  8. LIPITOR [Concomitant]
     Route: 048
  9. PEPCID [Concomitant]
     Indication: PROPHYLAXIS AGAINST GASTROINTESTINAL ULCER
     Route: 048
  10. CARDIAC MEDICATION [Concomitant]
  11. LOPRESSOR [Concomitant]
     Indication: HYPERTENSION
     Route: 048
  12. GLUCOPHAGE [Concomitant]
     Route: 048
  13. HEPARIN [Concomitant]
     Indication: THROMBOSIS PROPHYLAXIS
  14. LEVOXYL [Concomitant]
     Route: 048
  15. NITROSTAT [Concomitant]
     Route: 060

REACTIONS (8)
  - DYSPHAGIA [None]
  - DIVERTICULUM [None]
  - VOMITING [None]
  - CHEST DISCOMFORT [None]
  - DEHYDRATION [None]
  - THROAT IRRITATION [None]
  - POISONING [None]
  - ODYNOPHAGIA [None]
